FAERS Safety Report 8445044-8 (Version None)
Quarter: 2012Q2

REPORT INFORMATION
  Report Type: 
  Country: None (occurrence: None)
  Receive Date: 20120618
  Receipt Date: 20120607
  Transmission Date: 20120825
  Serious: Yes (Hospitalization)
  Sender: FDA-Public Use
  Company Number: US-ACTELION-A-NJ2011-43988

PATIENT

DRUGS (3)
  1. VIAGRA [Concomitant]
  2. TRACLEER [Suspect]
     Indication: PULMONARY ARTERIAL HYPERTENSION
     Dosage: UNK
     Route: 048
     Dates: start: 20060523
  3. OXYGEN [Concomitant]

REACTIONS (4)
  - PNEUMONIA [None]
  - CARDIAC DISORDER [None]
  - OXYGEN SATURATION ABNORMAL [None]
  - DRUG DOSE OMISSION [None]
